FAERS Safety Report 6547443-8 (Version None)
Quarter: 2010Q1

REPORT INFORMATION
  Report Type: 
  Country: None (occurrence: None)
  Receive Date: 20100119
  Receipt Date: 20100105
  Transmission Date: 20100710
  Serious: Yes (Death)
  Sender: FDA-Public Use
  Company Number: IDA-00322

PATIENT
  Age: 26 Year
  Sex: Male

DRUGS (1)
  1. PROPRANOLOL [Suspect]
     Dosage: DAILY, ORAL FORMULATION
     Route: 048

REACTIONS (4)
  - CARDIAC ARREST [None]
  - COMPLETED SUICIDE [None]
  - DRUG TOXICITY [None]
  - RESPIRATORY ARREST [None]
